FAERS Safety Report 7619502-X (Version None)
Quarter: 2011Q3

REPORT INFORMATION
  Report Type: 
  Country: None (occurrence: None)
  Receive Date: 20110719
  Receipt Date: 20110713
  Transmission Date: 20111222
  Serious: Yes (Death, Other)
  Sender: FDA-Public Use
  Company Number: DE-CELGENEUS-062-21660-11052929

PATIENT
  Age: 46 Year
  Sex: Female
  Weight: 59 kg

DRUGS (2)
  1. TRASTUZUMAB [Concomitant]
     Dosage: 17.1429 UNKNOWN
     Route: 065
     Dates: start: 20100501
  2. ABRAXANE [Suspect]
     Dosage: 8.9286 MILLIGRAM
     Route: 065
     Dates: start: 20101001

REACTIONS (2)
  - DEATH [None]
  - DYSPNOEA [None]
